FAERS Safety Report 14619676 (Version 1)
Quarter: 2018Q1

REPORT INFORMATION
  Report Type: Spontaneous
  Country: US (occurrence: US)
  Receive Date: 20180309
  Receipt Date: 20180309
  Transmission Date: 20180509
  Serious: Yes (Other)
  Sender: FDA-Public Use
  Company Number: None

PATIENT
  Age: 12 Year
  Sex: Male

DRUGS (12)
  1. GUANFACINE ER ALL DOSEAGES [Suspect]
     Active Substance: GUANFACINE
     Indication: ATTENTION DEFICIT/HYPERACTIVITY DISORDER
     Route: 048
  2. VIMPAT [Concomitant]
     Active Substance: LACOSAMIDE
  3. FELBAMATE. [Concomitant]
     Active Substance: FELBAMATE
  4. INTUNIV [Concomitant]
     Active Substance: GUANFACINE HYDROCHLORIDE
  5. VAYARIN [Concomitant]
     Active Substance: DOCONEXENT\ICOSAPENT\PHOSPHATIDYL SERINE
  6. CALCIUM [Concomitant]
     Active Substance: CALCIUM
  7. CARNITINE [Concomitant]
     Active Substance: CARNITINE
  8. VITAMIN B12 [Concomitant]
     Active Substance: CYANOCOBALAMIN
  9. VITD [Concomitant]
  10. DEPAKOTE ER [Concomitant]
     Active Substance: DIVALPROEX SODIUM
  11. DEXMETHYLPHENIDATE HYDROCHLORIDE. [Concomitant]
     Active Substance: DEXMETHYLPHENIDATE HYDROCHLORIDE
  12. VITAMIN B6 [Concomitant]
     Active Substance: PYRIDOXINE HYDROCHLORIDE

REACTIONS (6)
  - Product substitution issue [None]
  - Condition aggravated [None]
  - Drug effect decreased [None]
  - Abnormal behaviour [None]
  - Attention deficit/hyperactivity disorder [None]
  - Quality of life decreased [None]
